FAERS Safety Report 4377834-5 (Version None)
Quarter: 2004Q2

REPORT INFORMATION
  Report Type: 
  Country: None (occurrence: None)
  Receive Date: 20040609
  Receipt Date: 20040528
  Transmission Date: 20050107
  Serious: Yes (Hospitalization, Other)
  Sender: FDA-Public Use
  Company Number: 2004031565

PATIENT
  Age: 59 Year
  Sex: Female

DRUGS (6)
  1. RELPAX [Suspect]
     Indication: MIGRAINE
     Dosage: 10 MG (1 IN 1 D),ORAL
     Route: 048
     Dates: start: 20040313, end: 20040428
  2. ETHYL ICOSAPENTATE (ETHYL ICOSAPENTATE) [Concomitant]
  3. SODIUM BICARBONATE IN PLASTIC CONTAINER [Concomitant]
  4. GLUCOSE (GLUCOSE) [Concomitant]
  5. CONJUGATED ESTROGENS [Concomitant]
  6. MEDROXYPROGESTERONE ACETATE [Concomitant]

REACTIONS (1)
  - CEREBRAL INFARCTION [None]
